FAERS Safety Report 15222795 (Version 1)
Quarter: 2018Q3

REPORT INFORMATION
  Report Type: Spontaneous
  Country: BR (occurrence: BR)
  Receive Date: 20180731
  Receipt Date: 20180731
  Transmission Date: 20181010
  Serious: Yes (Death, Other)
  Sender: FDA-Public Use
  Company Number: BR-SHIRE-BR201828710

PATIENT

DRUGS (1)
  1. MESACOL MMX [Suspect]
     Active Substance: MESALAMINE
     Indication: HAEMATOCHEZIA
     Dosage: 1200 MG, 1X/DAY:QD
     Route: 048
     Dates: start: 2015

REACTIONS (4)
  - Product use in unapproved indication [Unknown]
  - Product use issue [Unknown]
  - Multiple organ dysfunction syndrome [Fatal]
  - Underdose [Unknown]

NARRATIVE: CASE EVENT DATE: 2015
